FAERS Safety Report 8355069-9 (Version None)
Quarter: 2012Q2

REPORT INFORMATION
  Report Type: 
  Country: None (occurrence: None)
  Receive Date: 20120511
  Receipt Date: 20120430
  Transmission Date: 20120825
  Serious: Yes (Hospitalization)
  Sender: FDA-Public Use
  Company Number: FR-ELI_LILLY_AND_COMPANY-FR201204009936

PATIENT
  Age: 47 Year
  Sex: Male

DRUGS (1)
  1. GEMZAR [Suspect]
     Indication: ADENOCARCINOMA
     Dosage: UNK, UNKNOWN
     Dates: start: 20111226

REACTIONS (3)
  - CYTOLYTIC HEPATITIS [None]
  - CHOLESTASIS [None]
  - CELL DEATH [None]
